FAERS Safety Report 19020944 (Version 1)
Quarter: 2021Q1

REPORT INFORMATION
  Report Type: Report from Study
  Country: GB (occurrence: GB)
  Receive Date: 20210317
  Receipt Date: 20210317
  Transmission Date: 20210420
  Serious: Yes (Other)
  Sender: FDA-Public Use
  Company Number: GB-MYLANLABS-2021M1014954

PATIENT
  Age: 43 Year
  Sex: Female

DRUGS (16)
  1. EPIRUBICIN [Suspect]
     Active Substance: EPIRUBICIN
     Dosage: 140 MILLIGRAM
     Route: 042
     Dates: start: 20180525, end: 20180615
  2. PERTUZUMAB. [Suspect]
     Active Substance: PERTUZUMAB
     Dosage: 420 MILLIGRAM/KILOGRAM, Q3W
     Route: 042
     Dates: start: 20170412
  3. SENNA                              /00142201/ [Concomitant]
     Active Substance: SENNA LEAF
     Indication: CONSTIPATION
     Dosage: 15 MILLIGRAM, BID
     Route: 048
     Dates: start: 20180315
  4. DOCETAXEL. [Suspect]
     Active Substance: DOCETAXEL
     Dosage: 148 MILLIGRAM
     Route: 042
     Dates: start: 20170412
  5. DIFFLAM [BENZYDAMINE] [Concomitant]
     Active Substance: BENZYDAMINE
     Indication: MOUTH ULCERATION
     Dosage: UNK UNK, PRN
     Route: 048
     Dates: start: 20180313
  6. PHOSPHATE SANDOZ [Concomitant]
     Active Substance: SODIUM PHOSPHATE, MONOBASIC, ANHYDROUS
     Dosage: UNK UNK, TID
     Route: 048
     Dates: start: 20200324, end: 20200328
  7. POTASSIUM CHLORIDE. [Concomitant]
     Active Substance: POTASSIUM CHLORIDE
     Indication: BLOOD POTASSIUM DECREASED
     Dosage: UNK UNK, TID
     Route: 048
     Dates: start: 20200324, end: 20200326
  8. CO?AMOXICLAV                       /00756801/ [Concomitant]
     Active Substance: AMOXICILLIN\CLAVULANIC ACID
     Indication: PRODUCT USED FOR UNKNOWN INDICATION
     Dosage: 625 MILLIGRAM, TID
     Route: 048
     Dates: start: 20200324, end: 20200328
  9. LACTULOSE. [Concomitant]
     Active Substance: LACTULOSE
     Indication: CONSTIPATION
     Dosage: 15 MILLILITER, QD
     Route: 048
     Dates: start: 20180315
  10. CAPECITABINE. [Suspect]
     Active Substance: CAPECITABINE
     Indication: BREAST CANCER METASTATIC
     Dosage: 2000 MILLIGRAM, BID
     Route: 048
     Dates: start: 20200721
  11. TRASTUZUMAB. [Suspect]
     Active Substance: TRASTUZUMAB
     Indication: BREAST CANCER METASTATIC
     Dosage: 514.5 MILLIGRAM, QW
     Route: 042
     Dates: start: 20170412, end: 20170412
  12. TRASTUZUMAB. [Suspect]
     Active Substance: TRASTUZUMAB
     Dosage: 483 MILLIGRAM/KILOGRAM, QW
     Route: 042
     Dates: start: 20170228
  13. EPIRUBICIN [Suspect]
     Active Substance: EPIRUBICIN
     Indication: BREAST CANCER METASTATIC
     Dosage: 180 MILLIGRAM, Q3W
     Route: 042
     Dates: start: 20180223, end: 20180427
  14. PERTUZUMAB. [Suspect]
     Active Substance: PERTUZUMAB
     Indication: BREAST CANCER METASTATIC
     Dosage: 420 MILLIGRAM/KILOGRAM, Q3W
     Route: 042
     Dates: start: 20170412, end: 20180412
  15. AMOXIL                             /00249601/ [Concomitant]
     Active Substance: AMOXICILLIN
     Indication: LOWER RESPIRATORY TRACT INFECTION
     Dosage: 500 MILLIGRAM, TID
     Route: 048
     Dates: start: 20180102, end: 20180107
  16. DOCETAXEL. [Suspect]
     Active Substance: DOCETAXEL
     Indication: BREAST CANCER METASTATIC
     Dosage: 148 MILLIGRAM, Q3W
     Route: 042
     Dates: start: 20170412, end: 20170614

REACTIONS (2)
  - Lower respiratory tract infection [Recovered/Resolved]
  - Vascular device infection [Recovered/Resolved]

NARRATIVE: CASE EVENT DATE: 20190402
